FAERS Safety Report 25395876 (Version 1)
Quarter: 2025Q2

REPORT INFORMATION
  Report Type: Spontaneous
  Country: US (occurrence: US)
  Receive Date: 20250604
  Receipt Date: 20250604
  Transmission Date: 20250716
  Serious: Yes (Hospitalization, Other)
  Sender: UCB
  Company Number: US-UCBSA-2025032584

PATIENT
  Age: 2 Year
  Sex: Male

DRUGS (5)
  1. KEPPRA [Suspect]
     Active Substance: LEVETIRACETAM
     Indication: Product used for unknown indication
     Dates: start: 20200920
  2. ONFI [Concomitant]
     Active Substance: CLOBAZAM
     Indication: Product used for unknown indication
     Dates: start: 20210127
  3. ONFI [Concomitant]
     Active Substance: CLOBAZAM
     Dosage: 6 MILLILITER, 2X/DAY (BID)
     Dates: start: 202204
  4. TOPAMAX [Concomitant]
     Active Substance: TOPIRAMATE
     Indication: Product used for unknown indication
     Dosage: 25 MILLIGRAM, 2X/DAY (BID)
     Dates: start: 202104
  5. EPIDIOLEX [Concomitant]
     Active Substance: CANNABIDIOL
     Indication: Product used for unknown indication
     Dosage: 1.2 MILLILITER, 2X/DAY (BID)
     Dates: start: 20210920

REACTIONS (13)
  - Seizure [Unknown]
  - Generalised tonic-clonic seizure [Unknown]
  - Petit mal epilepsy [Unknown]
  - Partial seizures [Unknown]
  - Atonic seizures [Unknown]
  - Myoclonic epilepsy [Unknown]
  - Constipation [Unknown]
  - COVID-19 [Unknown]
  - Insomnia [Unknown]
  - Otitis media acute [Unknown]
  - Gastrointestinal disorder [Unknown]
  - Feeding disorder [Unknown]
  - Somnolence [Unknown]

NARRATIVE: CASE EVENT DATE: 20230201
